FAERS Safety Report 9165228 (Version 1)
Quarter: 2013Q1

REPORT INFORMATION
  Report Type: Spontaneous
  Country: US (occurrence: None)
  Receive Date: 20130314
  Receipt Date: 20130314
  Transmission Date: 20140127
  Serious: No
  Sender: FDA-Public Use
  Company Number: None

PATIENT
  Age: 46 Year
  Sex: Female

DRUGS (1)
  1. AVONEX 30 MCG BIOGEN [Suspect]
     Route: 030
     Dates: end: 20130313

REACTIONS (2)
  - Hepatic function abnormal [None]
  - Thyroid disorder [None]
